FAERS Safety Report 8121009-0 (Version None)
Quarter: 2012Q1

REPORT INFORMATION
  Report Type: 
  Country: None (occurrence: None)
  Receive Date: 20120208
  Receipt Date: 20120201
  Transmission Date: 20120608
  Serious: Yes (Hospitalization, Other)
  Sender: FDA-Public Use
  Company Number: CA-NAPPMUNDI-CAN-2012-0002605

PATIENT
  Sex: Female

DRUGS (3)
  1. BUTRANS [Suspect]
     Indication: PRODUCT USED FOR UNKNOWN INDICATION
     Dosage: 5 MCG, Q1H
     Route: 065
  2. BUTRANS [Suspect]
     Dosage: 15 MCG, Q1H
     Route: 065
  3. BUTRANS [Suspect]
     Dosage: 10 MCG, Q1H
     Route: 065

REACTIONS (2)
  - RESPIRATORY DISTRESS [None]
  - DRUG INEFFECTIVE [None]
